FAERS Safety Report 19308687 (Version 1)
Quarter: 2021Q2

REPORT INFORMATION
  Report Type: Spontaneous
  Country: US (occurrence: US)
  Receive Date: 20210526
  Receipt Date: 20210526
  Transmission Date: 20210717
  Serious: No
  Sender: FDA-Public Use
  Company Number: US-PFIZER INC-2017181875

PATIENT
  Age: 59 Year
  Sex: Male
  Weight: 99.79 kg

DRUGS (3)
  1. LYRICA [Concomitant]
     Active Substance: PREGABALIN
     Dosage: UNK
  2. GABAPENTIN. [Suspect]
     Active Substance: GABAPENTIN
     Indication: NEUROPATHY PERIPHERAL
     Dosage: 1200 MG, 3X/DAY (800MG ONE AND A HALF CAPSULES)
     Route: 048
     Dates: start: 201603
  3. GABAPENTIN. [Suspect]
     Active Substance: GABAPENTIN
     Dosage: 1200 MG, 3X/DAY (TWO 600MG TABLETS 3 TIMES A DAY)

REACTIONS (6)
  - Aphasia [Unknown]
  - Drug effective for unapproved indication [Unknown]
  - Memory impairment [Not Recovered/Not Resolved]
  - Off label use [Unknown]
  - Dysphemia [Not Recovered/Not Resolved]
  - Frustration tolerance decreased [Unknown]

NARRATIVE: CASE EVENT DATE: 201603
